FAERS Safety Report 8020440-1 (Version None)
Quarter: 2012Q1

REPORT INFORMATION
  Report Type: 
  Country: None (occurrence: None)
  Receive Date: 20120103
  Receipt Date: 20111222
  Transmission Date: 20120608
  Serious: Yes (Other)
  Sender: FDA-Public Use
  Company Number: JP-SANOFI-AVENTIS-2011SA085048

PATIENT
  Age: 67 Year
  Sex: Male

DRUGS (5)
  1. ZOLPIDEM [Suspect]
     Route: 048
     Dates: start: 20111111
  2. ALL OTHER THERAPEUTIC PRODUCTS [Concomitant]
     Route: 048
     Dates: start: 20090401
  3. OLMESARTAN MEDOXOMIL [Concomitant]
     Route: 048
     Dates: start: 20090401
  4. ALLOPURINOL [Concomitant]
     Dates: start: 20000101
  5. AMLODIPINE [Concomitant]
     Route: 048
     Dates: start: 20090401

REACTIONS (2)
  - TOOTHACHE [None]
  - BACK PAIN [None]
